FAERS Safety Report 6248072-6 (Version None)
Quarter: 2009Q2

REPORT INFORMATION
  Report Type: 
  Country: None (occurrence: None)
  Receive Date: 20090628
  Receipt Date: 20090616
  Transmission Date: 20091009
  Serious: Yes (Hospitalization)
  Sender: FDA-Public Use
  Company Number: US-ELI_LILLY_AND_COMPANY-US200904000511

PATIENT
  Sex: Male
  Weight: 133.79 kg

DRUGS (6)
  1. ZYPREXA [Suspect]
     Dates: start: 20020101, end: 20040101
  2. MIRTAZAPINE [Concomitant]
  3. LISINOPRIL [Concomitant]
  4. ABILIFY [Concomitant]
  5. RITALIN [Concomitant]
  6. ZETIA [Concomitant]

REACTIONS (4)
  - GALLBLADDER DISORDER [None]
  - HYPERGLYCAEMIA [None]
  - TYPE 2 DIABETES MELLITUS [None]
  - WEIGHT INCREASED [None]
